FAERS Safety Report 9916293 (Version 4)
Quarter: 2014Q1

REPORT INFORMATION
  Report Type: Spontaneous
  Country: CA (occurrence: CA)
  Receive Date: 20140221
  Receipt Date: 20140319
  Transmission Date: 20141002
  Serious: No
  Sender: FDA-Public Use
  Company Number: CA-AMGEN-CANSP2012078361

PATIENT
  Age: 40 Year
  Sex: Female

DRUGS (7)
  1. ENBREL [Suspect]
     Indication: RHEUMATOID ARTHRITIS
     Dosage: 50 MG, QWK
     Route: 058
     Dates: start: 20120215
  2. TECTA [Concomitant]
     Dosage: UNK
  3. ZOPICLONE [Concomitant]
     Dosage: UNK
  4. TRAMADOL [Concomitant]
     Dosage: UNK
  5. CELEBREX [Concomitant]
     Dosage: UNK
  6. CENTRUM                            /02712901/ [Concomitant]
     Dosage: UNK
  7. VITAMIN B12                        /00056201/ [Concomitant]
     Dosage: UNK

REACTIONS (7)
  - Injection site mass [Not Recovered/Not Resolved]
  - Blood disorder [Not Recovered/Not Resolved]
  - Contusion [Not Recovered/Not Resolved]
  - Injection site erythema [Not Recovered/Not Resolved]
  - Injection site swelling [Recovered/Resolved]
  - Haemorrhage [Not Recovered/Not Resolved]
  - Overweight [Unknown]
